FAERS Safety Report 7940030-6 (Version None)
Quarter: 2011Q4

REPORT INFORMATION
  Report Type: 
  Country: None (occurrence: None)
  Receive Date: 20111125
  Receipt Date: 20111118
  Transmission Date: 20120403
  Serious: Yes (Hospitalization, Other)
  Sender: FDA-Public Use
  Company Number: IE-AMGEN-IRLSP2011055679

PATIENT
  Sex: Male

DRUGS (7)
  1. CALCIUM [Concomitant]
  2. ARANESP [Suspect]
     Indication: RENAL FAILURE CHRONIC
     Dosage: 30 MUG, QWK
     Route: 058
     Dates: start: 20111005
  3. LIPITOR [Concomitant]
  4. ISTIN [Concomitant]
  5. CARDURA [Concomitant]
  6. DIAMICRON [Concomitant]
  7. RENAGEL [Concomitant]

REACTIONS (3)
  - URACHAL ABNORMALITY [None]
  - PERITONEAL DIALYSIS [None]
  - CONVULSION [None]
